FAERS Safety Report 7342729-1 (Version None)
Quarter: 2011Q1

REPORT INFORMATION
  Report Type: 
  Country: None (occurrence: None)
  Receive Date: 20110310
  Receipt Date: 20110304
  Transmission Date: 20110831
  Serious: Yes (Hospitalization)
  Sender: FDA-Public Use
  Company Number: IT-BAYER-2011-020510

PATIENT
  Sex: Female

DRUGS (1)
  1. NEXAVAR [Suspect]
     Indication: HEPATIC NEOPLASM MALIGNANT NON-RESECTABLE
     Dosage: DAILY DOSE 800 MG
     Route: 048
     Dates: start: 20100420, end: 20101021

REACTIONS (2)
  - CONGESTIVE CARDIOMYOPATHY [None]
  - EJECTION FRACTION DECREASED [None]
